FAERS Safety Report 8802838 (Version 1)
Quarter: 2012Q4

REPORT INFORMATION
  Report Type: 
  Country: US (occurrence: US)
  Receive Date: 20120921
  Receipt Date: 20120921
  Transmission Date: 20130627
  Serious: No
  Sender: FDA-Public Use
  Company Number: US-009507513-1209USA004377

PATIENT
  Age: 43 Year
  Sex: Male

DRUGS (1)
  1. NUVARING [Suspect]
     Dosage: 1 UNK, UNK

REACTIONS (1)
  - Penis injury [Unknown]
